FAERS Safety Report 16309286 (Version 1)
Quarter: 2019Q2

REPORT INFORMATION
  Report Type: Spontaneous
  Country: US (occurrence: US)
  Receive Date: 20190514
  Receipt Date: 20190514
  Transmission Date: 20190711
  Serious: No
  Sender: FDA-Public Use
  Company Number: US-WARNER CHILCOTT-2015-000892

PATIENT
  Age: 75 Year
  Sex: Female

DRUGS (3)
  1. LOVAZA [Concomitant]
     Active Substance: OMEGA-3-ACID ETHYL ESTERS
     Indication: BLOOD CHOLESTEROL INCREASED
     Dosage: DAILY
     Route: 048
  2. ATELVIA [Suspect]
     Active Substance: RISEDRONATE SODIUM
     Indication: OSTEOPOROSIS
     Dosage: 35 MG, ONCE WEEKLY
     Route: 048
     Dates: start: 2013
  3. LATANOPROST. [Concomitant]
     Active Substance: LATANOPROST
     Indication: INTRAOCULAR PRESSURE INCREASED
     Dosage: BOTH EYES ARE NIGHT
     Route: 047

REACTIONS (2)
  - Product dose omission [Unknown]
  - Dysphagia [Unknown]

NARRATIVE: CASE EVENT DATE: 20150429
